FAERS Safety Report 24698824 (Version 1)
Quarter: 2024Q4

REPORT INFORMATION
  Report Type: Other
  Country: CN (occurrence: CN)
  Receive Date: 20241205
  Receipt Date: 20241205
  Transmission Date: 20250114
  Serious: Yes (Death, Hospitalization, Other)
  Sender: ANI
  Company Number: CN-ANIPHARMA-013025

PATIENT
  Age: 53 Year
  Sex: Male

DRUGS (16)
  1. LEUCOVORIN [Suspect]
     Active Substance: LEUCOVORIN\LEUCOVORIN CALCIUM
     Indication: Neuroendocrine carcinoma
     Dosage: FOLFIRI REGIMEN
  2. IRINOTECAN [Concomitant]
     Active Substance: IRINOTECAN
     Indication: Neuroendocrine carcinoma
     Dosage: FOLFIRI REGIMEN
  3. FLUOROURACIL [Concomitant]
     Active Substance: FLUOROURACIL
     Indication: Neuroendocrine carcinoma
     Dosage: FOLFIRI REGIMEN
  4. TORIPALIMAB [Concomitant]
     Active Substance: TORIPALIMAB
     Indication: Neuroendocrine carcinoma
     Dosage: FOLFIRI REGIMEN
  5. PACLITAXEL [Concomitant]
     Active Substance: PACLITAXEL
     Indication: Neuroendocrine carcinoma
  6. SUNITINIB [Concomitant]
     Active Substance: SUNITINIB
     Indication: Neuroendocrine carcinoma
  7. ETOPOSIDE [Concomitant]
     Active Substance: ETOPOSIDE
     Indication: Neuroendocrine carcinoma
     Dosage: 5 CYCLES
  8. CISPLATIN [Concomitant]
     Active Substance: CISPLATIN
     Indication: Neuroendocrine carcinoma
     Dosage: 5 CYCLES
  9. LEUCOVORIN [Suspect]
     Active Substance: LEUCOVORIN\LEUCOVORIN CALCIUM
     Indication: Gallbladder cancer
     Dosage: FOLFIRI REGIMEN
  10. IRINOTECAN [Concomitant]
     Active Substance: IRINOTECAN
     Indication: Gallbladder cancer
     Dosage: FOLFIRI REGIMEN
  11. FLUOROURACIL [Concomitant]
     Active Substance: FLUOROURACIL
     Indication: Gallbladder cancer
     Dosage: FOLFIRI REGIMEN
  12. TORIPALIMAB [Concomitant]
     Active Substance: TORIPALIMAB
     Indication: Gallbladder cancer
     Dosage: FOLFIRI REGIMEN
  13. PACLITAXEL [Concomitant]
     Active Substance: PACLITAXEL
     Indication: Gallbladder cancer
  14. SUNITINIB [Concomitant]
     Active Substance: SUNITINIB
     Indication: Gallbladder cancer
  15. ETOPOSIDE [Concomitant]
     Active Substance: ETOPOSIDE
     Indication: Gallbladder cancer
     Dosage: 5 CYCLES
  16. CISPLATIN [Concomitant]
     Active Substance: CISPLATIN
     Indication: Gallbladder cancer
     Dosage: 5 CYCLES

REACTIONS (1)
  - Myelosuppression [Fatal]
